FAERS Safety Report 4467861-1 (Version None)
Quarter: 2004Q4

REPORT INFORMATION
  Report Type: 
  Country: None (occurrence: None)
  Receive Date: 20041007
  Receipt Date: 20040709
  Transmission Date: 20050328
  Serious: Yes (Life-Threatening, Hospitalization)
  Sender: FDA-Public Use
  Company Number: PHBS2004JP09324

PATIENT
  Age: 57 Year
  Sex: Female

DRUGS (2)
  1. DIOVAN [Suspect]
     Indication: HYPERTENSION
     Dosage: 80 MG, BID
     Route: 048
     Dates: start: 20031203, end: 20040701
  2. AMLODIN [Suspect]
     Dosage: 2.5 MG, BID
     Route: 048
     Dates: start: 20040526, end: 20040701

REACTIONS (10)
  - ACUTE TONSILLITIS [None]
  - AGRANULOCYTOSIS [None]
  - ANISOCYTOSIS [None]
  - C-REACTIVE PROTEIN INCREASED [None]
  - LYMPHOCYTE STIMULATION TEST NEGATIVE [None]
  - NEUTROPHIL TOXIC GRANULATION PRESENT [None]
  - PLATELET DISORDER [None]
  - PYREXIA [None]
  - RED BLOOD CELL COUNT DECREASED [None]
  - WHITE BLOOD CELL COUNT DECREASED [None]
